FAERS Safety Report 12080305 (Version 1)
Quarter: 2016Q1

REPORT INFORMATION
  Report Type: Spontaneous
  Country: US (occurrence: None)
  Receive Date: 20160212
  Receipt Date: 20160212
  Transmission Date: 20160526
  Serious: Yes (Hospitalization)
  Sender: FDA-Public Use
  Company Number: None

PATIENT
  Age: 87 Year
  Sex: Male

DRUGS (7)
  1. ZYTIGA [Suspect]
     Active Substance: ABIRATERONE ACETATE
     Indication: NEOPLASM MALIGNANT
     Route: 048
     Dates: start: 20150528
  2. FUROSEMIDE. [Concomitant]
     Active Substance: FUROSEMIDE
  3. CARB/LEVO [Concomitant]
     Active Substance: CARBIDOPA\LEVODOPA
  4. WARFARIN [Concomitant]
     Active Substance: WARFARIN
  5. PREDNISONE 5MG [Suspect]
     Active Substance: PREDNISONE
     Indication: NEOPLASM MALIGNANT
     Route: 048
     Dates: start: 20150528
  6. AMIODARONE [Concomitant]
     Active Substance: AMIODARONE
  7. LEVOTHYROXIN [Concomitant]
     Active Substance: LEVOTHYROXINE

REACTIONS (4)
  - Blood pressure decreased [None]
  - Fall [None]
  - Loss of consciousness [None]
  - Dysstasia [None]

NARRATIVE: CASE EVENT DATE: 20160101
